FAERS Safety Report 10086793 (Version 4)
Quarter: 2014Q2

REPORT INFORMATION
  Report Type: Spontaneous
  Country: US (occurrence: US)
  Receive Date: 20140418
  Receipt Date: 20140617
  Transmission Date: 20141212
  Serious: Yes (Hospitalization)
  Sender: FDA-Public Use
  Company Number: US-GLAXOSMITHKLINE-A1069072A

PATIENT
  Age: 60 Year
  Sex: Male

DRUGS (13)
  1. COREG [Suspect]
     Indication: CARDIAC DISORDER
     Dosage: 6.25MG TWICE PER DAY
     Dates: start: 2000
  2. ADVAIR [Suspect]
     Indication: DYSPNOEA
     Dosage: 1PUFF TWICE PER DAY
     Dates: start: 2000
  3. PROVENTIL [Concomitant]
  4. PREVACID [Concomitant]
  5. WARFARIN [Concomitant]
  6. FUROSEMIDE [Concomitant]
  7. POTASSIUM [Concomitant]
  8. LISINOPRIL [Concomitant]
  9. BISACODYL [Concomitant]
  10. LIPITOR [Concomitant]
  11. MULTIVITAMIN [Concomitant]
  12. VITAMIN E [Concomitant]
  13. BABY ASPIRIN [Concomitant]

REACTIONS (5)
  - Pneumonia [Recovered/Resolved]
  - Oxygen supplementation [Recovered/Resolved]
  - Nasopharyngitis [Recovered/Resolved]
  - Dyspnoea [Recovered/Resolved]
  - Oxygen saturation decreased [Recovered/Resolved]
